FAERS Safety Report 8051909-1 (Version None)
Quarter: 2012Q1

REPORT INFORMATION
  Report Type: 
  Country: None (occurrence: None)
  Receive Date: 20120118
  Receipt Date: 20120110
  Transmission Date: 20120608
  Serious: Yes (Hospitalization)
  Sender: FDA-Public Use
  Company Number: US-JNJFOC-20120103117

PATIENT
  Sex: Female
  Weight: 90.72 kg

DRUGS (1)
  1. REMICADE [Suspect]
     Indication: PSORIATIC ARTHROPATHY
     Route: 042

REACTIONS (5)
  - CERVICAL SPINAL STENOSIS [None]
  - BACK DISORDER [None]
  - POST PROCEDURAL COMPLICATION [None]
  - INCONTINENCE [None]
  - ABASIA [None]
